FAERS Safety Report 5468120-0 (Version None)
Quarter: 2007Q3

REPORT INFORMATION
  Report Type: 
  Country: None (occurrence: None)
  Receive Date: 20070926
  Receipt Date: 20070918
  Transmission Date: 20080115
  Serious: Yes (Hospitalization)
  Sender: FDA-Public Use
  Company Number: CN-JNJFOC-20070903367

PATIENT
  Age: 50 Year
  Sex: Male

DRUGS (1)
  1. NIZORAL [Suspect]
     Indication: PSORIASIS
     Route: 048

REACTIONS (2)
  - GENERALISED ERYTHEMA [None]
  - SKIN SWELLING [None]
